FAERS Safety Report 10029473 (Version 2)
Quarter: 2014Q1

REPORT INFORMATION
  Report Type: Spontaneous
  Country: FR (occurrence: FR)
  Receive Date: 20140322
  Receipt Date: 20140322
  Transmission Date: 20141002
  Serious: Yes (Other)
  Sender: FDA-Public Use
  Company Number: FR-ROCHE-1364239

PATIENT
  Age: 52 Year
  Sex: Female

DRUGS (3)
  1. ROACTEMRA [Suspect]
     Indication: RHEUMATOID ARTHRITIS
     Route: 042
     Dates: start: 20111214
  2. HYPERIUM [Concomitant]
  3. OMEPRAZOLE [Concomitant]

REACTIONS (2)
  - Localised infection [Unknown]
  - Osteitis [Unknown]
